FAERS Safety Report 11696953 (Version 1)
Quarter: 2015Q4

REPORT INFORMATION
  Report Type: Report from Study
  Country: US (occurrence: US)
  Receive Date: 20151104
  Receipt Date: 20151104
  Transmission Date: 20160304
  Serious: Yes (Hospitalization)
  Sender: FDA-Public Use
  Company Number: US-SIGMA-TAU US-2015STPI000696

PATIENT
  Age: 47 Year
  Sex: Male
  Weight: 71.4 kg

DRUGS (6)
  1. METHOTREXATE [Suspect]
     Active Substance: METHOTREXATE
     Indication: ACUTE LYMPHOCYTIC LEUKAEMIA
     Dosage: 12 MG, X2
     Route: 037
     Dates: start: 20151007
  2. VINCRISTINE [Suspect]
     Active Substance: VINCRISTINE
     Indication: ACUTE LYMPHOCYTIC LEUKAEMIA
     Dosage: 1.4 MG/M2, QW
     Route: 042
     Dates: start: 20150924
  3. PREDNISONE. [Suspect]
     Active Substance: PREDNISONE
     Indication: ACUTE LYMPHOCYTIC LEUKAEMIA
     Dosage: 120 MG, QD
     Route: 048
     Dates: start: 20150924
  4. DAUNORUBICIN [Suspect]
     Active Substance: DAUNORUBICIN
     Indication: ACUTE LYMPHOCYTIC LEUKAEMIA
     Dosage: 60 MG/M2, OTHER
     Route: 042
  5. POSACONAZOLE [Suspect]
     Active Substance: POSACONAZOLE
     Indication: PRODUCT USED FOR UNKNOWN INDICATION
     Route: 065
     Dates: start: 20151015
  6. ONCASPAR [Suspect]
     Active Substance: PEGASPARGASE
     Indication: ACUTE LYMPHOCYTIC LEUKAEMIA
     Dosage: 2000 IU/M2, X1
     Route: 042
     Dates: start: 20151008

REACTIONS (6)
  - Dehydration [None]
  - Nausea [Recovered/Resolved]
  - Hypophagia [None]
  - Fatigue [Not Recovered/Not Resolved]
  - Hyperbilirubinaemia [None]
  - Hyponatraemia [None]

NARRATIVE: CASE EVENT DATE: 20151022
